FAERS Safety Report 4272223-6 (Version None)
Quarter: 2004Q1

REPORT INFORMATION
  Report Type: 
  Country: None (occurrence: None)
  Receive Date: 20040114
  Receipt Date: 20040107
  Transmission Date: 20041129
  Serious: Yes (Death)
  Sender: FDA-Public Use
  Company Number: US-JNJFOC-20040101327

PATIENT

DRUGS (1)
  1. REMINYL [Suspect]
     Indication: DEMENTIA ALZHEIMER'S TYPE

REACTIONS (1)
  - DEATH [None]
